FAERS Safety Report 5228049-X (Version None)
Quarter: 2007Q1

REPORT INFORMATION
  Report Type: 
  Country: None (occurrence: None)
  Receive Date: 20061201
  Receipt Date: 20060829
  Transmission Date: 20070707
  Serious: Yes (Other)
  Sender: FDA-Public Use
  Company Number: US200608006610

PATIENT
  Sex: Male

DRUGS (4)
  1. ALIMTA [Suspect]
     Indication: MESOTHELIOMA
     Dosage: INTRAVENOUS
     Route: 042
  2. FOLIC ACID [Concomitant]
  3. VITAMIN B12 [Concomitant]
  4. DECADRON [Concomitant]

REACTIONS (1)
  - PLATELET COUNT DECREASED [None]
